FAERS Safety Report 5958444-2 (Version None)
Quarter: 2008Q4

REPORT INFORMATION
  Report Type: 
  Country: None (occurrence: None)
  Receive Date: 20081119
  Receipt Date: 20081111
  Transmission Date: 20090506
  Serious: Yes (Hospitalization)
  Sender: FDA-Public Use
  Company Number: US-GILEAD-2008-0018544

PATIENT
  Sex: Female
  Weight: 119.86 kg

DRUGS (11)
  1. LETAIRIS [Suspect]
     Indication: PULMONARY ARTERIAL HYPERTENSION
     Route: 048
     Dates: start: 20080912
  2. COUMADIN [Concomitant]
  3. ALDACTONE [Concomitant]
  4. ALLOPURINOL [Concomitant]
  5. CYMBALTA [Concomitant]
  6. GLUCOVANCE [Concomitant]
  7. LYRICA [Concomitant]
  8. ASPIRIN [Concomitant]
  9. PACERONE [Concomitant]
  10. PHOSLO [Concomitant]
  11. LASIX [Concomitant]

REACTIONS (6)
  - CARDIAC FAILURE CONGESTIVE [None]
  - EPISTAXIS [None]
  - FATIGUE [None]
  - LOSS OF CONSCIOUSNESS [None]
  - MOUTH HAEMORRHAGE [None]
  - TRAUMATIC HAEMORRHAGE [None]
